FAERS Safety Report 17289754 (Version 3)
Quarter: 2021Q1

REPORT INFORMATION
  Report Type: Spontaneous
  Country: DE (occurrence: DE)
  Receive Date: 20200120
  Receipt Date: 20210216
  Transmission Date: 20210419
  Serious: Yes (Other)
  Sender: FDA-Public Use
  Company Number: DE-MYLANLABS-2020M1004502

PATIENT
  Sex: Female
  Weight: 80 kg

DRUGS (1)
  1. TERBINAFINE. [Suspect]
     Active Substance: TERBINAFINE
     Indication: PRODUCT USED FOR UNKNOWN INDICATION
     Dosage: UNK
     Route: 048
     Dates: start: 201807

REACTIONS (11)
  - Pain in extremity [Unknown]
  - Hyperaesthesia [Unknown]
  - Deep vein thrombosis [Unknown]
  - Muscular weakness [Unknown]
  - Thrombophlebitis [Unknown]
  - Thrombosis [Unknown]
  - Pain [Unknown]
  - Peripheral swelling [Unknown]
  - Embolism venous [Unknown]
  - Musculoskeletal stiffness [Unknown]
  - Limb discomfort [Unknown]

NARRATIVE: CASE EVENT DATE: 201808
